FAERS Safety Report 5132163-7 (Version None)
Quarter: 2006Q4

REPORT INFORMATION
  Report Type: 
  Country: None (occurrence: None)
  Receive Date: 20061017
  Receipt Date: 20060302
  Transmission Date: 20070319
  Serious: Yes (Death, Other)
  Sender: FDA-Public Use
  Company Number: US200605002269

PATIENT
  Age: 41 Year
  Sex: Male
  Weight: 158.7 kg

DRUGS (1)
  1. ZYPREXA [Suspect]
     Dosage: UNK, UNK, UNK

REACTIONS (4)
  - DIABETES MELLITUS [None]
  - DIABETIC KETOACIDOSIS [None]
  - PANCREATITIS [None]
  - WEIGHT INCREASED [None]
